FAERS Safety Report 12483634 (Version 1)
Quarter: 2016Q2

REPORT INFORMATION
  Report Type: Spontaneous
  Country: None (occurrence: None)
  Receive Date: 20160617
  Receipt Date: 20160617
  Transmission Date: 20160815
  Serious: Yes (Hospitalization, Other)
  Sender: FDA-Public Use
  Company Number: CA-ALSI-201600162

PATIENT
  Age: 74 Year
  Sex: Male
  Weight: 80 kg

DRUGS (24)
  1. DOMPERIDONE [Concomitant]
     Active Substance: DOMPERIDONE
  2. METHYLPREDNISOLONE. [Concomitant]
     Active Substance: METHYLPREDNISOLONE
  3. LANTUS [Concomitant]
     Active Substance: INSULIN GLARGINE
  4. OLESTYR (ANHYDROUS CHOLESTYRAMINE) [Concomitant]
  5. ACTEMRA [Suspect]
     Active Substance: TOCILIZUMAB
     Indication: RHEUMATOID ARTHRITIS
     Route: 042
  6. PARACETAMOL [Concomitant]
     Active Substance: ACETAMINOPHEN
  7. ULTRAM [Concomitant]
     Active Substance: TRAMADOL HYDROCHLORIDE
  8. AMLODIPINE [Concomitant]
     Active Substance: AMLODIPINE BESYLATE
  9. GLICLAZIDE [Concomitant]
     Active Substance: GLICLAZIDE
  10. PRAVASTATIN [Concomitant]
     Active Substance: PRAVASTATIN\PRAVASTATIN SODIUM
  11. RISEDRONATE SODIUM. [Concomitant]
     Active Substance: RISEDRONATE SODIUM
  12. DIAMICRON (GLICLAZIDE) [Concomitant]
     Active Substance: GLICLAZIDE
  13. FERROUS SULFATE. [Concomitant]
     Active Substance: FERROUS SULFATE
  14. NITRO-DUR (PURE NITROGLYCERIN) [Concomitant]
  15. OXYGEN. [Suspect]
     Active Substance: OXYGEN
     Indication: PRODUCT USED FOR UNKNOWN INDICATION
     Route: 055
  16. ACTEMRA [Suspect]
     Active Substance: TOCILIZUMAB
  17. RITUXAN [Suspect]
     Active Substance: RITUXIMAB
  18. IRON DEXTRAN [Concomitant]
     Active Substance: IRON DEXTRAN
  19. RABEPRAZOLE [Concomitant]
     Active Substance: RABEPRAZOLE
  20. DIPHENHYDRAMINE HYDROCHLORIDE. [Concomitant]
     Active Substance: DIPHENHYDRAMINE HYDROCHLORIDE
  21. BETAHISTINE [Concomitant]
     Active Substance: BETAHISTINE
  22. RAMIPRIL. [Concomitant]
     Active Substance: RAMIPRIL
  23. CALCITONIN [Concomitant]
     Active Substance: CALCITONIN
  24. METHOTREXATE [Suspect]
     Active Substance: METHOTREXATE

REACTIONS (25)
  - Dizziness [None]
  - Oxygen saturation decreased [None]
  - Blood pressure diastolic increased [None]
  - Confusional state [None]
  - Epistaxis [None]
  - Infection [None]
  - Neutropenia [None]
  - Blood pressure increased [None]
  - Brain neoplasm [None]
  - Hallucination, auditory [None]
  - Head injury [None]
  - Lung infection [None]
  - Musculoskeletal stiffness [None]
  - Pneumonia [None]
  - Fall [None]
  - Wound [None]
  - Infusion related reaction [None]
  - Prostate cancer [None]
  - Anxiety [None]
  - Lower respiratory tract infection [None]
  - Arthralgia [None]
  - Blood pressure abnormal [None]
  - Headache [None]
  - Respiratory rate increased [None]
  - Weight increased [None]
